FAERS Safety Report 6388465-X (Version None)
Quarter: 2009Q4

REPORT INFORMATION
  Report Type: 
  Country: None (occurrence: None)
  Receive Date: 20091005
  Receipt Date: 20090930
  Transmission Date: 20100525
  Serious: Yes (Hospitalization)
  Sender: FDA-Public Use
  Company Number: A0810023A

PATIENT
  Age: 65 Year
  Sex: Male
  Weight: 99.7 kg

DRUGS (4)
  1. MELPHALAN [Suspect]
     Indication: MULTIPLE MYELOMA
     Dosage: 9MGM2 CYCLIC
     Route: 048
     Dates: start: 20090729
  2. VELCADE [Suspect]
     Indication: MULTIPLE MYELOMA
     Dosage: 1.3MGM2 CYCLIC
     Route: 042
     Dates: start: 20090728
  3. PREDNISONE TAB [Suspect]
     Indication: MULTIPLE MYELOMA
     Dosage: 60MGM2 CYCLIC
     Route: 048
     Dates: start: 20090729
  4. ALOXI [Suspect]

REACTIONS (1)
  - ABDOMINAL PAIN [None]
